FAERS Safety Report 18544438 (Version 1)
Quarter: 2020Q4

REPORT INFORMATION
  Report Type: Spontaneous
  Country: CH (occurrence: CH)
  Receive Date: 20201125
  Receipt Date: 20201125
  Transmission Date: 20210114
  Serious: Yes (Hospitalization, Disabling, Other)
  Sender: FDA-Public Use
  Company Number: CH-GLAXOSMITHKLINE-CH2020228023

PATIENT
  Age: 27 Year
  Sex: Male

DRUGS (8)
  1. WELLBUTRIN XL [Suspect]
     Active Substance: BUPROPION HYDROCHLORIDE
     Indication: DEPRESSION
     Dosage: 150 MG, QD
     Route: 048
     Dates: start: 20200606, end: 20200617
  2. ANXIOLIT [Suspect]
     Active Substance: OXAZEPAM
     Dosage: 30 MG
     Route: 065
     Dates: start: 20200618, end: 20200619
  3. TRAMAL [Suspect]
     Active Substance: TRAMADOL
     Indication: PRODUCT USED FOR UNKNOWN INDICATION
     Dosage: 100 MG, QD
     Route: 048
     Dates: start: 20200619, end: 20200619
  4. CIPRALEX [Concomitant]
     Active Substance: ESCITALOPRAM OXALATE
     Dosage: 10 MG
     Route: 048
     Dates: start: 20200606, end: 20200617
  5. WELLBUTRIN XL [Suspect]
     Active Substance: BUPROPION HYDROCHLORIDE
     Dosage: 300 MG
     Route: 048
     Dates: start: 20200617, end: 20200619
  6. ANXIOLIT [Suspect]
     Active Substance: OXAZEPAM
     Indication: PRODUCT USED FOR UNKNOWN INDICATION
     Dosage: 165 MG, QD
     Route: 065
     Dates: start: 202005, end: 20200617
  7. CIPRALEX [Concomitant]
     Active Substance: ESCITALOPRAM OXALATE
     Indication: DEPRESSION
     Dosage: 20 MG, QD
     Route: 048
     Dates: end: 20200606
  8. ANXIOLIT [Suspect]
     Active Substance: OXAZEPAM
     Dosage: 45 MG
     Route: 065
     Dates: start: 20200619, end: 20200619

REACTIONS (5)
  - Vertebral wedging [Unknown]
  - Tongue biting [Unknown]
  - Joint dislocation [Unknown]
  - Generalised tonic-clonic seizure [Recovering/Resolving]
  - Thoracic vertebral fracture [Unknown]

NARRATIVE: CASE EVENT DATE: 20200617
